FAERS Safety Report 23846672 (Version 1)
Quarter: 2024Q2

REPORT INFORMATION
  Report Type: Spontaneous
  Country: US (occurrence: US)
  Receive Date: 20240513
  Receipt Date: 20240513
  Transmission Date: 20240716
  Serious: No
  Sender: FDA-Public Use
  Company Number: US-E2BLSMVVAL-SPO/USA/24/0006678

PATIENT
  Age: 12 Year
  Sex: Female

DRUGS (2)
  1. JAVYGTOR [Suspect]
     Active Substance: SAPROPTERIN DIHYDROCHLORIDE
     Indication: Illness
     Dosage: DISSOLVE TWO 100MG POWDER PACKETS IN 4 TO 8 OUNCES OF WATER OR APPLE JUICE AND DRINK DAILY ONCE. TAK
     Route: 048
  2. JAVYGTOR [Suspect]
     Active Substance: SAPROPTERIN DIHYDROCHLORIDE
     Indication: Illness
     Dosage: DISSOLVE TWO 500MG POWDER PACKETS IN 4 TO 8 OUNCES OF WATER OR APPLE JUICE AND DRINK DAILY ONCE. TAK
     Route: 048

REACTIONS (1)
  - Recalled product administered [Unknown]
